FAERS Safety Report 11938495 (Version 1)
Quarter: 2016Q1

REPORT INFORMATION
  Report Type: Spontaneous
  Country: US (occurrence: US)
  Receive Date: 20160122
  Receipt Date: 20160122
  Transmission Date: 20160526
  Serious: No
  Sender: FDA-Public Use
  Company Number: US-PFIZER INC-2016021975

PATIENT
  Age: 69 Year
  Sex: Female
  Weight: 68.95 kg

DRUGS (3)
  1. DILAUDID [Concomitant]
     Active Substance: HYDROMORPHONE HYDROCHLORIDE
     Indication: BACK PAIN
     Dosage: 4 MG, AS NEEDED ((TAKES ONE AT NIGHT WHEN THE PAIN WAKES HER UP AT NIGHT))
     Route: 048
     Dates: start: 2011
  2. LYRICA [Suspect]
     Active Substance: PREGABALIN
     Indication: NEURALGIA
     Dosage: 75 MG, 4X/DAY
     Route: 048
     Dates: start: 2013, end: 201601
  3. MOTRIN [Concomitant]
     Active Substance: IBUPROFEN
     Indication: NEURALGIA
     Dosage: 600MG EVERY DAY OR EVERY OTHER DAY
     Route: 048

REACTIONS (7)
  - Joint swelling [Recovering/Resolving]
  - Pruritus [Recovering/Resolving]
  - Rash [Recovering/Resolving]
  - Aggression [Recovering/Resolving]
  - Swelling face [Recovering/Resolving]
  - Peripheral swelling [Recovering/Resolving]
  - Insomnia [Recovering/Resolving]

NARRATIVE: CASE EVENT DATE: 201512
